FAERS Safety Report 18049174 (Version 1)
Quarter: 2020Q3

REPORT INFORMATION
  Report Type: Report from Study
  Country: US (occurrence: US)
  Receive Date: 20200721
  Receipt Date: 20200721
  Transmission Date: 20201103
  Serious: Yes (Other)
  Sender: FDA-Public Use
  Company Number: US-BAYER-2020-134027

PATIENT

DRUGS (1)
  1. ALKA?SELTZER PLUS MAXIMUM STRENGTH DAY AND NIGHT COLD AND FLU [Suspect]
     Active Substance: ACETAMINOPHEN\DEXTROMETHORPHAN HYDROBROMIDE\DOXYLAMINE SUCCINATE\PHENYLEPHRINE HYDROCHLORIDE

REACTIONS (3)
  - Choking [Unknown]
  - Retching [Unknown]
  - Foreign body in throat [Unknown]
